FAERS Safety Report 18175082 (Version 7)
Quarter: 2021Q1

REPORT INFORMATION
  Report Type: Spontaneous
  Country: US (occurrence: US)
  Receive Date: 20200820
  Receipt Date: 20210208
  Transmission Date: 20210419
  Serious: No
  Sender: FDA-Public Use
  Company Number: US-PFIZER INC-2020265237

PATIENT
  Age: 72 Year
  Sex: Male
  Weight: 97.98 kg

DRUGS (4)
  1. LYRICA [Suspect]
     Active Substance: PREGABALIN
     Dosage: 75 MG, 4X/DAY
     Dates: start: 20200811
  2. LYRICA [Suspect]
     Active Substance: PREGABALIN
     Indication: TYPE 1 DIABETES MELLITUS
     Dosage: 300 MG, DAILY (ONE IN AM, ONE IN MIDDAY AND 2 IN THE EVENING; TOTAL 4 TABLETS)
     Route: 048
  3. LYRICA [Suspect]
     Active Substance: PREGABALIN
     Indication: DIABETIC NEUROPATHY
     Dosage: 75 MG, 3X/DAY
     Route: 048
  4. LYRICA [Suspect]
     Active Substance: PREGABALIN
     Dosage: 100 MG, THREE TIMES DAILY
     Route: 048

REACTIONS (6)
  - Diabetic neuropathy [Unknown]
  - Condition aggravated [Unknown]
  - Drug ineffective [Unknown]
  - Amnesia [Not Recovered/Not Resolved]
  - Speech disorder [Not Recovered/Not Resolved]
  - Blood glucose abnormal [Unknown]
